FAERS Safety Report 12847600 (Version 4)
Quarter: 2017Q2

REPORT INFORMATION
  Report Type: Spontaneous
  Country: US (occurrence: US)
  Receive Date: 20161014
  Receipt Date: 20170518
  Transmission Date: 20170830
  Serious: Yes (Other)
  Sender: FDA-Public Use
  Company Number: US-TEVA-701015ACC

PATIENT
  Sex: Female

DRUGS (3)
  1. ADVAIR DISKUS [Concomitant]
     Active Substance: FLUTICASONE PROPIONATE\SALMETEROL XINAFOATE
  2. PARAGARD T 380A [Suspect]
     Active Substance: COPPER
     Dates: start: 20110119, end: 20160730
  3. SINGULAIR [Concomitant]
     Active Substance: MONTELUKAST SODIUM

REACTIONS (4)
  - Emotional distress [Unknown]
  - Abortion induced [Unknown]
  - Exposure during pregnancy [Unknown]
  - Pregnancy on contraceptive [Unknown]
